FAERS Safety Report 15830100 (Version 2)
Quarter: 2019Q1

REPORT INFORMATION
  Report Type: Report from Study
  Country: GB (occurrence: GB)
  Receive Date: 20190115
  Receipt Date: 20190201
  Transmission Date: 20190417
  Serious: Yes (Hospitalization)
  Sender: FDA-Public Use
  Company Number: GB-SHIRE-GB201901202

PATIENT

DRUGS (3)
  1. VELAGLUCERASE ALFA [Suspect]
     Active Substance: VELAGLUCERASE ALFA
     Indication: GAUCHER^S DISEASE
     Dosage: 1600 IU, 1X/2WKS
     Route: 042
  2. WATER FOR INJECTION [Concomitant]
     Active Substance: WATER
  3. SALINE [Concomitant]
     Active Substance: SODIUM CHLORIDE

REACTIONS (1)
  - Infusion related reaction [Not Recovered/Not Resolved]
